FAERS Safety Report 7376671-7 (Version None)
Quarter: 2011Q1

REPORT INFORMATION
  Report Type: 
  Country: None (occurrence: None)
  Receive Date: 20110325
  Receipt Date: 20110317
  Transmission Date: 20110831
  Serious: Yes (Death, Other)
  Sender: FDA-Public Use
  Company Number: US-BAXTER-2010BH026301

PATIENT
  Age: 84 Year
  Sex: Male
  Weight: 73 kg

DRUGS (37)
  1. RISPERDAL [Concomitant]
     Indication: PRODUCT USED FOR UNKNOWN INDICATION
     Route: 065
  2. NAMENDA [Concomitant]
     Indication: PRODUCT USED FOR UNKNOWN INDICATION
     Route: 065
  3. PNEUMOCOCCAL VACCINE [Concomitant]
     Indication: PRODUCT USED FOR UNKNOWN INDICATION
     Route: 065
  4. LACRI-LUBE [Concomitant]
     Indication: PRODUCT USED FOR UNKNOWN INDICATION
     Route: 031
  5. LACTATED RINGER'S [Concomitant]
     Indication: PRODUCT USED FOR UNKNOWN INDICATION
     Route: 042
     Dates: start: 20080404, end: 20080404
  6. ARICEPT [Concomitant]
     Route: 065
  7. DONEPEZIL HCL [Concomitant]
     Indication: PRODUCT USED FOR UNKNOWN INDICATION
     Route: 048
     Dates: start: 20080330, end: 20080407
  8. DEXTROSE W/POTASSIUM CHLORIDE AND NACL [Concomitant]
     Indication: PRODUCT USED FOR UNKNOWN INDICATION
     Route: 042
     Dates: start: 20080330, end: 20080401
  9. HEPARIN SODIUM INJECTION [Suspect]
     Route: 058
     Dates: start: 20080427, end: 20080503
  10. LEXAPRO [Concomitant]
     Indication: PRODUCT USED FOR UNKNOWN INDICATION
     Route: 065
  11. DAILY MULTIVITAMIN [Concomitant]
     Indication: PRODUCT USED FOR UNKNOWN INDICATION
     Route: 048
  12. HALOPERIDOL [Concomitant]
     Indication: PRODUCT USED FOR UNKNOWN INDICATION
     Route: 065
  13. AZITHROMYCIN [Concomitant]
     Indication: PRODUCT USED FOR UNKNOWN INDICATION
     Route: 048
     Dates: start: 20080330, end: 20080330
  14. MORPHINE [Concomitant]
     Indication: PAIN
     Route: 042
     Dates: start: 20080405, end: 20080407
  15. POTASSIUM CHLORIDE/DEXTROSE [Concomitant]
     Indication: PRODUCT USED FOR UNKNOWN INDICATION
     Route: 042
     Dates: start: 20080404, end: 20080408
  16. HEPARIN SODIUM INJECTION [Suspect]
     Route: 058
     Dates: start: 20080330, end: 20080408
  17. VANCOMYCIN [Concomitant]
     Route: 065
  18. METRONIDAZOLE [Concomitant]
     Indication: PRODUCT USED FOR UNKNOWN INDICATION
     Route: 048
     Dates: start: 20080330, end: 20080408
  19. PIPERACILLIN AND TAZOBACTAM [Concomitant]
     Indication: PRODUCT USED FOR UNKNOWN INDICATION
     Route: 042
     Dates: start: 20080331, end: 20080403
  20. HEPARIN SODIUM INJECTION [Suspect]
     Route: 058
  21. ASPIRIN [Concomitant]
     Indication: PRODUCT USED FOR UNKNOWN INDICATION
     Route: 065
  22. ARICEPT [Concomitant]
     Indication: PRODUCT USED FOR UNKNOWN INDICATION
     Route: 065
  23. LEVOBUNOLOL [Concomitant]
     Indication: PRODUCT USED FOR UNKNOWN INDICATION
     Route: 047
  24. ACYCLOVIR [Concomitant]
     Indication: PRODUCT USED FOR UNKNOWN INDICATION
     Route: 065
  25. CEFTRIAXONE [Concomitant]
     Indication: PRODUCT USED FOR UNKNOWN INDICATION
     Route: 065
  26. GATIFLOXACIN [Concomitant]
     Indication: PRODUCT USED FOR UNKNOWN INDICATION
     Route: 047
  27. ACYCLOVIR [Concomitant]
     Route: 042
  28. HEPARIN SODIUM INJECTION [Suspect]
  29. CELEXA [Concomitant]
     Indication: PRODUCT USED FOR UNKNOWN INDICATION
     Route: 065
  30. SODIUM CHLORIDE [Concomitant]
     Indication: PRODUCT USED FOR UNKNOWN INDICATION
     Route: 042
  31. GABAPENTIN [Concomitant]
     Indication: PRODUCT USED FOR UNKNOWN INDICATION
     Route: 048
     Dates: start: 20080406, end: 20080408
  32. HEPARIN SODIUM INJECTION [Suspect]
     Indication: THROMBOSIS PROPHYLAXIS
     Route: 058
     Dates: start: 20080303, end: 20080311
  33. WARFARIN [Suspect]
     Indication: PRODUCT USED FOR UNKNOWN INDICATION
     Route: 065
     Dates: end: 20080101
  34. ERYTHROMYCIN [Concomitant]
     Indication: PRODUCT USED FOR UNKNOWN INDICATION
     Route: 065
  35. OXYBUTYNIN [Concomitant]
     Indication: PRODUCT USED FOR UNKNOWN INDICATION
     Route: 065
  36. VANCOMYCIN [Concomitant]
     Indication: PRODUCT USED FOR UNKNOWN INDICATION
     Route: 065
  37. OMEPRAZOLE [Concomitant]
     Indication: PRODUCT USED FOR UNKNOWN INDICATION
     Route: 048
     Dates: start: 20080402, end: 20080408

REACTIONS (22)
  - ATRIAL FIBRILLATION [None]
  - URINARY RETENTION [None]
  - LEUKOCYTOSIS [None]
  - COAGULOPATHY [None]
  - DYSARTHRIA [None]
  - SEPSIS [None]
  - HYPOTENSION [None]
  - LETHARGY [None]
  - PSEUDOMEMBRANOUS COLITIS [None]
  - PYREXIA [None]
  - TACHYCARDIA [None]
  - CLOSTRIDIUM DIFFICILE COLITIS [None]
  - DEMENTIA [None]
  - MUSCLE SPASMS [None]
  - ASTHENIA [None]
  - BLOOD UREA INCREASED [None]
  - MENTAL STATUS CHANGES [None]
  - CHROMATURIA [None]
  - NAUSEA [None]
  - DEHYDRATION [None]
  - BLOOD CREATININE INCREASED [None]
  - DECREASED APPETITE [None]
